FAERS Safety Report 6855998-9 (Version None)
Quarter: 2010Q2

REPORT INFORMATION
  Report Type: 
  Country: None (occurrence: None)
  Receive Date: 20100629
  Receipt Date: 20100511
  Transmission Date: 20101027
  Serious: No
  Sender: FDA-Public Use
  Company Number: US-WYE-H15221710

PATIENT
  Age: 29 Year
  Sex: Female
  Weight: 64.47 kg

DRUGS (3)
  1. PRISTIQ [Suspect]
     Indication: DEPRESSION
     Dosage: 1/2 TABLET DAILY FOR 4 DAYS, ORAL : 50 MG 1X PER 1 DAY, ORAL
     Route: 048
     Dates: start: 20090101, end: 20100501
  2. PRISTIQ [Suspect]
     Indication: DEPRESSION
     Dosage: 1/2 TABLET DAILY FOR 4 DAYS, ORAL : 50 MG 1X PER 1 DAY, ORAL
     Route: 048
     Dates: start: 20100501, end: 20100501
  3. WELLBUTRIN [Concomitant]

REACTIONS (6)
  - DIZZINESS [None]
  - DRUG WITHDRAWAL SYNDROME [None]
  - FEELING ABNORMAL [None]
  - IRRITABILITY [None]
  - NAUSEA [None]
  - PARAESTHESIA [None]
